FAERS Safety Report 19041820 (Version 2)
Quarter: 2021Q1

REPORT INFORMATION
  Report Type: Spontaneous
  Country: RU (occurrence: RU)
  Receive Date: 20210322
  Receipt Date: 20210330
  Transmission Date: 20210420
  Serious: Yes (Other)
  Sender: FDA-Public Use
  Company Number: RU-ASTRAZENECA-2021A150965

PATIENT
  Sex: Male

DRUGS (9)
  1. LEVOFLOXACIN. [Concomitant]
     Active Substance: LEVOFLOXACIN
     Dosage: 500
  2. APIXABAN [Concomitant]
     Active Substance: APIXABAN
  3. SYMBICORT [Suspect]
     Active Substance: BUDESONIDE\FORMOTEROL FUMARATE DIHYDRATE
     Dosage: 2 DOSAGE BID WHEN HE WAS ILL WITH CORONAVIRUS
     Route: 055
     Dates: start: 2018
  4. TOCILIZUMAB. [Concomitant]
     Active Substance: TOCILIZUMAB
  5. IMMUNOGLOBULIN (IVIG) [Concomitant]
     Active Substance: HUMAN IMMUNOGLOBULIN G
     Route: 042
  6. ENALAPRIL [Concomitant]
     Active Substance: ENALAPRIL
  7. AZITHROMYCIN ANHYDROUS. [Concomitant]
     Active Substance: AZITHROMYCIN ANHYDROUS
     Dosage: 250 BID LONGTIME
  8. DIGOXIN. [Concomitant]
     Active Substance: DIGOXIN
  9. CONVALESCENT PLASMA [Concomitant]
     Active Substance: HUMAN PLASMA

REACTIONS (2)
  - Therapeutic product effective for unapproved indication [Unknown]
  - Coronavirus infection [Recovered/Resolved]
